FAERS Safety Report 24827406 (Version 4)
Quarter: 2025Q2

REPORT INFORMATION
  Report Type: Report from Study
  Country: US (occurrence: US)
  Receive Date: 20250109
  Receipt Date: 20250408
  Transmission Date: 20250716
  Serious: No
  Sender: SANOFI AVENTIS
  Company Number: US-SANOFI-02364282

PATIENT
  Age: 59 Year
  Sex: Male

DRUGS (8)
  1. DUPILUMAB [Suspect]
     Active Substance: DUPILUMAB
     Indication: Chronic obstructive pulmonary disease
     Route: 058
     Dates: start: 20241210, end: 20241210
  2. DUPILUMAB [Suspect]
     Active Substance: DUPILUMAB
     Indication: Asthma
     Dosage: 200 MG, QOW
     Route: 058
     Dates: start: 20241224
  3. DUPILUMAB [Suspect]
     Active Substance: DUPILUMAB
     Dosage: 300 MG, QOW
     Route: 058
  4. BREZTRI [Concomitant]
     Active Substance: BUDESONIDE\FORMOTEROL\GLYCOPYRROLATE
     Route: 055
  5. ALBUTEROL [Concomitant]
     Active Substance: ALBUTEROL
     Route: 055
  6. VITAMIN D NOS [Concomitant]
     Active Substance: CHOLECALCIFEROL\ERGOCALCIFEROL
  7. ENTRESTO [Concomitant]
     Active Substance: SACUBITRIL\VALSARTAN
  8. SPIRONOLACTONE [Concomitant]
     Active Substance: SPIRONOLACTONE

REACTIONS (6)
  - Dry skin [Unknown]
  - Eye discharge [Unknown]
  - Malaise [Recovering/Resolving]
  - Dizziness [Unknown]
  - Pruritus [Unknown]
  - Off label use [Unknown]

NARRATIVE: CASE EVENT DATE: 20241210
